FAERS Safety Report 14022952 (Version 3)
Quarter: 2018Q2

REPORT INFORMATION
  Report Type: Spontaneous
  Country: PL (occurrence: PL)
  Receive Date: 20170929
  Receipt Date: 20180508
  Transmission Date: 20180711
  Serious: Yes (Death)
  Sender: FDA-Public Use
  Company Number: PL-INCYTE CORPORATION-2017IN007926

PATIENT

DRUGS (1)
  1. JAKAVI [Suspect]
     Active Substance: RUXOLITINIB
     Indication: MYELOFIBROSIS
     Dosage: 40 MG, UNK
     Route: 048
     Dates: start: 20170801, end: 20170807

REACTIONS (5)
  - Hepatosplenomegaly [Unknown]
  - Starvation [Fatal]
  - Myelofibrosis [Fatal]
  - Oesophageal varices haemorrhage [Fatal]
  - Varices oesophageal [Fatal]

NARRATIVE: CASE EVENT DATE: 201708
